FAERS Safety Report 10667027 (Version 2)
Quarter: 2015Q3

REPORT INFORMATION
  Report Type: Spontaneous
  Country: US (occurrence: US)
  Receive Date: 20141222
  Receipt Date: 20150807
  Transmission Date: 20151125
  Serious: No
  Sender: FDA-Public Use
  Company Number: US-BIOGENIDEC-2014BI134393

PATIENT
  Age: 60 Year
  Sex: Female

DRUGS (7)
  1. FLUOXETINE HCL [Concomitant]
     Active Substance: FLUOXETINE HYDROCHLORIDE
  2. SKELAXIN [Concomitant]
     Active Substance: METAXALONE
  3. TECFIDERA [Suspect]
     Active Substance: DIMETHYL FUMARATE
     Indication: MULTIPLE SCLEROSIS
     Route: 048
  4. TIZANIDINE COMFORT PAC [Concomitant]
  5. ETODOLAC CR [Concomitant]
  6. ACTONEL [Concomitant]
     Active Substance: RISEDRONATE SODIUM
  7. AMPYRA [Concomitant]
     Active Substance: DALFAMPRIDINE

REACTIONS (1)
  - Joint stiffness [Not Recovered/Not Resolved]
